FAERS Safety Report 7355617-1 (Version None)
Quarter: 2011Q1

REPORT INFORMATION
  Report Type: 
  Country: None (occurrence: None)
  Receive Date: 20110307
  Receipt Date: 20110223
  Transmission Date: 20110831
  Serious: Yes (Disabling)
  Sender: FDA-Public Use
  Company Number: 2011MA001707

PATIENT
  Age: 24 Year
  Sex: Male

DRUGS (1)
  1. GABAPENTIN [Suspect]

REACTIONS (13)
  - HEART RATE INCREASED [None]
  - BODY TEMPERATURE INCREASED [None]
  - ROAD TRAFFIC ACCIDENT [None]
  - SLEEP ATTACKS [None]
  - IMPAIRED DRIVING ABILITY [None]
  - MOVEMENT DISORDER [None]
  - MYDRIASIS [None]
  - NYSTAGMUS [None]
  - LETHARGY [None]
  - AGGRESSION [None]
  - DISTURBANCE IN ATTENTION [None]
  - DYSARTHRIA [None]
  - BLOOD PRESSURE INCREASED [None]
